FAERS Safety Report 5571807-2 (Version None)
Quarter: 2007Q4

REPORT INFORMATION
  Report Type: 
  Country: None (occurrence: None)
  Receive Date: 20071221
  Receipt Date: 20071217
  Transmission Date: 20080405
  Serious: Yes (Other)
  Sender: FDA-Public Use
  Company Number: B0500427A

PATIENT
  Age: 6 Year
  Sex: Female

DRUGS (4)
  1. INFANRIXTETRA [Suspect]
     Indication: PROPHYLAXIS
     Route: 065
     Dates: start: 20070906, end: 20070906
  2. CLAMOXYL [Suspect]
     Indication: DRUG USE FOR UNKNOWN INDICATION
     Route: 065
     Dates: start: 20071001, end: 20071001
  3. ORELOX [Concomitant]
     Dates: start: 20070101
  4. MACROLIDE [Concomitant]
     Dates: start: 20070101

REACTIONS (8)
  - DIPHTHERIA TOXIN ANTIBODY DECREASED [None]
  - ERYTHEMA [None]
  - HYPERTHERMIA [None]
  - HYPOTHERMIA [None]
  - INAPPROPRIATE SCHEDULE OF DRUG ADMINISTRATION [None]
  - LEUKOCYTOSIS [None]
  - MALAISE [None]
  - RASH MACULAR [None]
